FAERS Safety Report 7652505-8 (Version None)
Quarter: 2011Q3

REPORT INFORMATION
  Report Type: 
  Country: None (occurrence: None)
  Receive Date: 20110803
  Receipt Date: 20110722
  Transmission Date: 20111222
  Serious: Yes (Hospitalization)
  Sender: FDA-Public Use
  Company Number: US-AMGEN-USASP2011037500

PATIENT
  Age: 63 Year
  Sex: Female

DRUGS (1)
  1. ENBREL [Suspect]
     Indication: RHEUMATOID ARTHRITIS
     Dosage: 50 MG, QWK
     Dates: start: 20060101, end: 20110527

REACTIONS (5)
  - NEUROLOGICAL SYMPTOM [None]
  - RHEUMATOID ARTHRITIS [None]
  - BALANCE DISORDER [None]
  - SENSORY DISTURBANCE [None]
  - THERAPEUTIC RESPONSE DECREASED [None]
